FAERS Safety Report 9026852 (Version 1)
Quarter: 2013Q1

REPORT INFORMATION
  Report Type: Spontaneous
  Country: US (occurrence: None)
  Receive Date: 20130109
  Receipt Date: 20130109
  Transmission Date: 20140127
  Serious: Yes (Other)
  Sender: FDA-Public Use
  Company Number: FK201204211

PATIENT
  Age: 48 Year
  Sex: Male

DRUGS (4)
  1. DOXORUBICIN (DOXORUBICIN) (DOXORUBICIN) [Suspect]
     Indication: NON-HODGKIN^S LYMPHOMA
  2. CYCLOPHOSPHAMIDE (CYCLOPHOSPHAMIDE) [Suspect]
     Indication: NON-HODGKIN^S LYMPHOMA
  3. VINCRISTINE [Suspect]
     Indication: NON-HODGKIN^S LYMPHOMA
  4. PREDNISONE (PREDNISONE) [Suspect]
     Indication: NON-HODGKIN^S LYMPHOMA

REACTIONS (1)
  - Pneumatosis intestinalis [None]
